FAERS Safety Report 23326982 (Version 1)
Quarter: 2023Q4

REPORT INFORMATION
  Report Type: Spontaneous
  Country: US (occurrence: None)
  Receive Date: 20231220
  Receipt Date: 20231220
  Transmission Date: 20240110
  Serious: Yes (Disabling)
  Sender: FDA-Public Use
  Company Number: None

PATIENT
  Age: 53 Year
  Sex: Female
  Weight: 60.75 kg

DRUGS (12)
  1. VAGIFEM [Suspect]
     Active Substance: ESTRADIOL
     Indication: Atrophic vulvovaginitis
     Dosage: FREQUENCY : TWICE A WEEK;?
     Route: 067
     Dates: start: 20230213, end: 20231216
  2. NALTREXONE [Concomitant]
     Active Substance: NALTREXONE
  3. VITAMIN D [Concomitant]
     Active Substance: VITAMIN D NOS
  4. FISH OIL [Concomitant]
     Active Substance: FISH OIL
  5. VITAMIN B12 [Concomitant]
     Active Substance: CYANOCOBALAMIN
  6. CLARITIN [Concomitant]
     Active Substance: LORATADINE
  7. NASACORT [Concomitant]
     Active Substance: TRIAMCINOLONE ACETONIDE
  8. FOLIC ACID [Concomitant]
     Active Substance: FOLIC ACID
  9. ZINC [Concomitant]
     Active Substance: PYRITHIONE ZINC\ZINC\ZINC CHLORIDE
  10. Ester C [Concomitant]
  11. CHERRY EXTRACT [Concomitant]
     Active Substance: CHERRY EXTRACT
  12. HERBALS\TURMERIC [Concomitant]
     Active Substance: HERBALS\TURMERIC

REACTIONS (1)
  - Vulvovaginal pain [None]

NARRATIVE: CASE EVENT DATE: 20231210
